FAERS Safety Report 25007801 (Version 4)
Quarter: 2025Q2

REPORT INFORMATION
  Report Type: Spontaneous
  Country: JP (occurrence: JP)
  Receive Date: 20250225
  Receipt Date: 20250624
  Transmission Date: 20250716
  Serious: Yes (Hospitalization, Disabling, Other)
  Sender: ABBVIE
  Company Number: JP-ABBVIE-6126168

PATIENT
  Age: 45 Year
  Sex: Female
  Weight: 52 kg

DRUGS (14)
  1. HUMIRA [Suspect]
     Active Substance: ADALIMUMAB
     Indication: Crohn^s disease
     Dosage: FORM STRENGTH: 40 MILLIGRAMS
     Route: 058
     Dates: start: 2016
  2. ESOMEPRAZOLE MAGNESIUM [Concomitant]
     Active Substance: ESOMEPRAZOLE MAGNESIUM
     Indication: Gastrooesophageal reflux disease
     Dosage: 20 MILLIGRAM?DURATION TEXT: 8 COURSES
     Route: 048
     Dates: start: 20200907
  3. MAGNESIUM OXIDE [Concomitant]
     Active Substance: MAGNESIUM OXIDE
     Indication: Constipation
     Dosage: 660 MILLIGRAM
     Route: 048
     Dates: end: 20210712
  4. MAGNESIUM OXIDE [Concomitant]
     Active Substance: MAGNESIUM OXIDE
     Indication: Constipation
     Dosage: 1320 MILLIGRAM
     Route: 048
     Dates: start: 20210913
  5. Herbal medicine (DAIKENCHUTO) [Concomitant]
     Indication: Constipation
     Route: 048
     Dates: start: 20230220
  6. Herbal medicine (DAIKENCHUTO) [Concomitant]
     Indication: Constipation
     Route: 048
     Dates: start: 20230119, end: 20230219
  7. ZOLPIDEM TARTRATE [Concomitant]
     Active Substance: ZOLPIDEM TARTRATE
     Indication: Insomnia
     Dosage: 5 MILLIGRAM
     Route: 048
     Dates: start: 20221231, end: 20230306
  8. METHYLCOBALAMIN [Concomitant]
     Active Substance: METHYLCOBALAMIN
     Indication: Hypoaesthesia
     Route: 048
     Dates: start: 20221221, end: 20230531
  9. ETODOLAC [Concomitant]
     Active Substance: ETODOLAC
     Indication: Hypoaesthesia
     Dosage: 400 MILLIGRAM
     Route: 048
     Dates: start: 20221224, end: 20250103
  10. PREGABALIN [Concomitant]
     Active Substance: PREGABALIN
     Indication: Hypoaesthesia
     Dosage: 150 MILLIGRAM
     Route: 048
     Dates: start: 20221225, end: 20230220
  11. Clostridium butyricum [Concomitant]
     Indication: Diarrhoea
     Route: 048
     Dates: start: 20221228
  12. ETIZOLAM [Concomitant]
     Active Substance: ETIZOLAM
     Indication: Insomnia
     Dosage: 1 MILLIGRAM
     Route: 048
     Dates: start: 20230112
  13. AZATHIOPRINE [Concomitant]
     Active Substance: AZATHIOPRINE
     Indication: Crohn^s disease
     Route: 048
  14. MESALAMINE [Concomitant]
     Active Substance: MESALAMINE
     Indication: Crohn^s disease
     Route: 048

REACTIONS (10)
  - Gastrointestinal stoma necrosis [Unknown]
  - Lung opacity [Unknown]
  - Rectal cancer [Not Recovered/Not Resolved]
  - Metastases to uterus [Unknown]
  - Renal atrophy [Unknown]
  - Haemangioma of liver [Unknown]
  - Uterine leiomyoma [Unknown]
  - Large intestine polyp [Unknown]
  - Adenocarcinoma [Unknown]
  - Lymphadenopathy [Unknown]

NARRATIVE: CASE EVENT DATE: 20221107
